FAERS Safety Report 5261745-7 (Version None)
Quarter: 2007Q1

REPORT INFORMATION
  Report Type: 
  Country: None (occurrence: None)
  Receive Date: 20061215
  Receipt Date: 20050913
  Transmission Date: 20070707
  Serious: Yes (Life-Threatening, Hospitalization)
  Sender: FDA-Public Use
  Company Number: 05H-163-0302603-00

PATIENT
  Age: 53 Year
  Sex: Female
  Weight: 127.0072 kg

DRUGS (13)
  1. MORPHINE SULFATE INJ [Suspect]
     Indication: POSTOPERATIVE ANALGESIA
     Dates: start: 20050909
  2. EFFEXOR (VENLAGAXINE HYDROCHLORIDE) [Concomitant]
  3. ALTACE [Concomitant]
  4. PANTOPRAZOLE SODIUM [Concomitant]
  5. SLOW-MAG (MAGNESIUM CHLORIDE ANHYDROUS) [Concomitant]
  6. ATIVAN [Concomitant]
  7. NEURONTIN [Concomitant]
  8. FLEXERIL [Concomitant]
  9. INSULIN (INSULIN) [Concomitant]
  10. VANC [Concomitant]
  11. ATORVASTATIN CALCIUM [Concomitant]
  12. REGRANEX (BECAPLEMIN) [Concomitant]
  13. COREG [Concomitant]

REACTIONS (3)
  - MEDICATION ERROR [None]
  - OVERDOSE [None]
  - RESPIRATORY DEPRESSION [None]
